FAERS Safety Report 11451078 (Version 2)
Quarter: 2015Q3

REPORT INFORMATION
  Report Type: Spontaneous
  Country: AU (occurrence: AU)
  Receive Date: 20150903
  Receipt Date: 20150925
  Transmission Date: 20151125
  Serious: Yes (Life-Threatening, Hospitalization)
  Sender: FDA-Public Use
  Company Number: AU-ROCHE-1627499

PATIENT
  Age: 76 Year
  Sex: Male
  Weight: 64 kg

DRUGS (10)
  1. CYCLOPHOSPHAMIDE. [Suspect]
     Active Substance: CYCLOPHOSPHAMIDE
     Indication: PRODUCT USED FOR UNKNOWN INDICATION
     Route: 048
  2. LANTUS [Concomitant]
     Active Substance: INSULIN GLARGINE
  3. ASPIRIN. [Concomitant]
     Active Substance: ASPIRIN
  4. METFORMIN [Concomitant]
     Active Substance: METFORMIN HYDROCHLORIDE
  5. CANDESARTAN [Concomitant]
     Active Substance: CANDESARTAN
  6. MABTHERA [Suspect]
     Active Substance: RITUXIMAB
     Indication: PRODUCT USED FOR UNKNOWN INDICATION
     Route: 042
     Dates: start: 20150619
  7. NOVORAPID [Concomitant]
     Active Substance: INSULIN ASPART
  8. FLUDARABINE [Suspect]
     Active Substance: FLUDARABINE PHOSPHATE
     Indication: PRODUCT USED FOR UNKNOWN INDICATION
     Route: 048
     Dates: start: 20150619, end: 20150621
  9. TAMSULOSIN [Concomitant]
     Active Substance: TAMSULOSIN
  10. PRAVASTATIN [Concomitant]
     Active Substance: PRAVASTATIN\PRAVASTATIN SODIUM

REACTIONS (24)
  - Enterococcal bacteraemia [Recovered/Resolved]
  - Multi-organ failure [Unknown]
  - Glomerular filtration rate decreased [Unknown]
  - Cellulitis [Unknown]
  - Nephrolithiasis [Unknown]
  - C-reactive protein increased [Unknown]
  - Candida sepsis [Recovered/Resolved]
  - Human rhinovirus test positive [Recovered/Resolved]
  - Septic shock [Unknown]
  - Oedema [Unknown]
  - Neutropenia [Recovered/Resolved]
  - Urine abnormality [Unknown]
  - Renal colic [Unknown]
  - Cardiac murmur [Unknown]
  - White blood cell count decreased [Unknown]
  - Pyrexia [Recovered/Resolved]
  - Costovertebral angle tenderness [Unknown]
  - Blood creatinine increased [Unknown]
  - Neutrophil count decreased [Unknown]
  - Platelet count decreased [Unknown]
  - Hydronephrosis [Unknown]
  - Haemoglobin decreased [Unknown]
  - Urosepsis [Recovered/Resolved]
  - Respiratory tract infection [Recovered/Resolved]

NARRATIVE: CASE EVENT DATE: 20150703
